FAERS Safety Report 16710165 (Version 2)
Quarter: 2019Q3

REPORT INFORMATION
  Report Type: Spontaneous
  Country: CO (occurrence: CO)
  Receive Date: 20190816
  Receipt Date: 20190820
  Transmission Date: 20191004
  Serious: Yes (Other)
  Sender: FDA-Public Use
  Company Number: CO-PFIZER INC-2019351092

PATIENT
  Sex: Male

DRUGS (2)
  1. AXITINIB [Suspect]
     Active Substance: AXITINIB
     Indication: RENAL CANCER
     Dosage: 5 MG, 2X/DAY
     Dates: start: 201508
  2. AXITINIB [Suspect]
     Active Substance: AXITINIB
     Dosage: 10 MG, 2X/DAY (WITH ASCENDING DOSE UP 10 MG)
     Dates: end: 201606

REACTIONS (8)
  - Cardiotoxicity [Recovered/Resolved]
  - Pericarditis [Unknown]
  - Weight decreased [Recovering/Resolving]
  - Pancreatitis [Unknown]
  - Thyroiditis [Unknown]
  - Decreased appetite [Unknown]
  - Diarrhoea [Unknown]
  - Hypothyroidism [Unknown]
